FAERS Safety Report 19803341 (Version 1)
Quarter: 2021Q3

REPORT INFORMATION
  Report Type: Spontaneous
  Country: US (occurrence: US)
  Receive Date: 20210903
  Receipt Date: 20210903
  Transmission Date: 20211014
  Serious: No
  Sender: FDA-Public Use
  Company Number: None

PATIENT
  Age: 53 Year
  Sex: Female

DRUGS (1)
  1. HUMIRA [Suspect]
     Active Substance: ADALIMUMAB
     Indication: PSORIASIS
     Dosage: EVERY 2 WEEKAS AS DIRECTED. IN THE ABDOMEN OR THIGH (ROTATE SITES)
     Route: 058
     Dates: start: 201802

REACTIONS (1)
  - Nasopharyngitis [None]
